FAERS Safety Report 12962999 (Version 1)
Quarter: 2016Q4

REPORT INFORMATION
  Report Type: Report from Study
  Country: US (occurrence: US)
  Receive Date: 20161122
  Receipt Date: 20161122
  Transmission Date: 20170207
  Serious: No
  Sender: FDA-Public Use
  Company Number: ALCN2016US007804

PATIENT
  Sex: Female

DRUGS (2)
  1. TRAVATAN Z [Suspect]
     Active Substance: TRAVOPROST
     Indication: GLAUCOMA
     Route: 065
  2. AZOPT [Suspect]
     Active Substance: BRINZOLAMIDE
     Indication: GLAUCOMA
     Route: 065

REACTIONS (1)
  - Blood cholesterol abnormal [Unknown]
